FAERS Safety Report 4806889-6 (Version None)
Quarter: 2005Q4

REPORT INFORMATION
  Report Type: 
  Country: None (occurrence: None)
  Receive Date: 20051019
  Receipt Date: 20051003
  Transmission Date: 20060501
  Serious: Yes (Hospitalization)
  Sender: FDA-Public Use
  Company Number: 2005-0008771

PATIENT
  Age: 48 Year
  Sex: Male

DRUGS (5)
  1. VIREAD [Suspect]
     Indication: HIV INFECTION
     Dosage: ORAL
     Route: 048
     Dates: start: 20050218, end: 20050718
  2. PEGASYS [Suspect]
     Indication: HEPATITIS B VIRUS
     Dosage: 1 DOSAGE FORMS, 1 IN 1 WK
     Dates: start: 20050218, end: 20050718
  3. RETROVIR [Concomitant]
  4. CRIXIVAN [Concomitant]
  5. EPIVIR [Concomitant]

REACTIONS (7)
  - ANAEMIA [None]
  - APLASIA PURE RED CELL [None]
  - ERYTHROPENIA [None]
  - IATROGENIC INJURY [None]
  - NEUTROPENIA [None]
  - PARVOVIRUS B19 SEROLOGY POSITIVE [None]
  - PLATELET COUNT INCREASED [None]
